FAERS Safety Report 8817002 (Version 1)
Quarter: 2012Q4

REPORT INFORMATION
  Report Type: Spontaneous
  Country: US (occurrence: None)
  Receive Date: 20121003
  Receipt Date: 20121003
  Transmission Date: 20130627
  Serious: Yes (Hospitalization)
  Sender: FDA-Public Use
  Company Number: None

PATIENT
  Age: 72 Year
  Sex: Male
  Weight: 118.2 kg

DRUGS (1)
  1. SIMVASTATIN [Suspect]
     Indication: CEREBROVASCULAR ACCIDENT PROPHYLAXIS
     Dosage: 1/2 tab, PM, PO
     Route: 048
     Dates: start: 20111223, end: 20120119

REACTIONS (4)
  - Rhabdomyolysis [None]
  - Myopathy [None]
  - Aspartate aminotransferase increased [None]
  - Alanine aminotransferase increased [None]
